FAERS Safety Report 19593628 (Version 1)
Quarter: 2021Q3

REPORT INFORMATION
  Report Type: Report from Study
  Country: GB (occurrence: GB)
  Receive Date: 20210722
  Receipt Date: 20210722
  Transmission Date: 20211014
  Serious: Yes (Death, Other)
  Sender: FDA-Public Use
  Company Number: GB-ACCORD-232308

PATIENT

DRUGS (26)
  1. TEMAZEPAM. [Concomitant]
     Active Substance: TEMAZEPAM
     Dosage: 20 MG
     Route: 048
  2. VENTOLIN [Concomitant]
     Active Substance: ALBUTEROL SULFATE
     Dosage: 200 MG
  3. LANSOPRAZOLE. [Concomitant]
     Active Substance: LANSOPRAZOLE
     Route: 048
  4. DOCETAXEL. [Suspect]
     Active Substance: DOCETAXEL
     Indication: BREAST CANCER
     Dosage: 132 MG, EVERY 3 WEEKS
     Route: 042
     Dates: start: 20180112, end: 20180112
  5. LETROZOLE. [Suspect]
     Active Substance: LETROZOLE
     Indication: BREAST CANCER
     Dosage: 2.5 MG, QD
     Route: 048
     Dates: start: 2012, end: 201712
  6. PERTUZUMAB. [Suspect]
     Active Substance: PERTUZUMAB
     Indication: BREAST CANCER
     Dosage: 840 MG, EVERY 3 WEEKS
     Route: 042
     Dates: start: 20180112, end: 20180112
  7. TRASTUZUMAB. [Suspect]
     Active Substance: TRASTUZUMAB
     Indication: BREAST CANCER
     Dosage: 441 MG, EVERY 3 WEEKS
     Route: 042
     Dates: start: 20180202, end: 20180809
  8. IBUPROFEN. [Concomitant]
     Active Substance: IBUPROFEN
     Indication: PAIN
     Dosage: 200 MG, 0.33/DAY
     Route: 048
     Dates: start: 20190515, end: 2019
  9. AMOXICILLIN. [Concomitant]
     Active Substance: AMOXICILLIN
     Dosage: 500 MG, 0.33/DAY
     Route: 048
     Dates: start: 20181026, end: 20181102
  10. ACETYLSALICYLIC ACID [Concomitant]
     Active Substance: ASPIRIN
     Dosage: 75 MG
  11. BUTEC [Concomitant]
     Active Substance: BUPRENORPHINE
     Dosage: 20 MICROGRAM, 1/WEEK
     Route: 062
     Dates: start: 201909
  12. DENOSUMAB [Concomitant]
     Active Substance: DENOSUMAB
     Indication: METASTASES TO BONE
     Dosage: 120 MG
     Route: 058
     Dates: start: 20190116, end: 20190416
  13. DOCETAXEL. [Suspect]
     Active Substance: DOCETAXEL
     Indication: PRODUCT USED FOR UNKNOWN INDICATION
     Dosage: 88 MG, EVERY 3 WEEKS
     Route: 042
     Dates: start: 20180312, end: 20180312
  14. CALCICHEW D3 FORTE [Concomitant]
     Active Substance: CALCIUM\CHOLECALCIFEROL
     Indication: METASTASES TO BONE
     Dosage: UNK, 1/DAY
     Route: 048
     Dates: start: 201811, end: 201905
  15. KETOCONAZOLE. [Concomitant]
     Active Substance: KETOCONAZOLE
     Dosage: 2 %, 0.5/WEEK
     Route: 061
  16. ONDANSETRON [Concomitant]
     Active Substance: ONDANSETRON
     Dosage: 8 MG, 0.33/WEEK
     Route: 048
     Dates: start: 20180112
  17. AMITRIPTYLINE [Concomitant]
     Active Substance: AMITRIPTYLINE
     Dosage: 10 MG
     Route: 050
     Dates: start: 20180723, end: 2019
  18. DEXAMETHASONE. [Concomitant]
     Active Substance: DEXAMETHASONE
     Dosage: 8 MG, 0.33/WEEK
     Route: 048
     Dates: start: 20180112
  19. LOPERAMIDE [Concomitant]
     Active Substance: LOPERAMIDE
     Dosage: 2 MG
     Route: 048
     Dates: start: 20180131
  20. METOCLOPRAMIDE. [Concomitant]
     Active Substance: METOCLOPRAMIDE
     Dosage: THREE TIMES A DAY FOR 14 DAYS
     Route: 048
     Dates: start: 20181005, end: 20190819
  21. DOCETAXEL. [Suspect]
     Active Substance: DOCETAXEL
     Indication: PRODUCT USED FOR UNKNOWN INDICATION
     Dosage: 108 MG, EVERY 3 WEEKS
     Route: 042
     Dates: start: 20180202, end: 20180312
  22. LOPERAMIDE [Concomitant]
     Active Substance: LOPERAMIDE
     Indication: DIARRHOEA
     Dosage: 4 MG FOLLOWED BY 2 MG AFTER EACH EPISODE
     Route: 048
     Dates: start: 20180220
  23. MIRTAZAPINE. [Concomitant]
     Active Substance: MIRTAZAPINE
     Dosage: 15 MG
     Route: 048
  24. PARACETAMOL [Concomitant]
     Active Substance: ACETAMINOPHEN
     Indication: PAIN
     Dosage: 1 G, 0.25/DAY
     Route: 048
     Dates: start: 20190327, end: 2019
  25. PERTUZUMAB. [Suspect]
     Active Substance: PERTUZUMAB
     Indication: PRODUCT USED FOR UNKNOWN INDICATION
     Dosage: 420 MG, EVERY 3 WEEKS
     Route: 042
     Dates: start: 20180202, end: 20180809
  26. TRASTUZUMAB. [Suspect]
     Active Substance: TRASTUZUMAB
     Indication: PRODUCT USED FOR UNKNOWN INDICATION
     Dosage: 588 MG, EVERY 3 WEEKS
     Route: 042
     Dates: start: 20180112, end: 20180112

REACTIONS (2)
  - Fatigue [Not Recovered/Not Resolved]
  - Disease progression [Fatal]

NARRATIVE: CASE EVENT DATE: 201801
